FAERS Safety Report 5664163-2 (Version None)
Quarter: 2008Q1

REPORT INFORMATION
  Report Type: 
  Country: None (occurrence: None)
  Receive Date: 20080314
  Receipt Date: 20080314
  Transmission Date: 20080703
  Serious: No
  Sender: FDA-Public Use
  Company Number: None

PATIENT
  Sex: Female
  Weight: 127.0072 kg

DRUGS (2)
  1. HEPARIN [Suspect]
     Indication: THROMBOSIS
     Dosage: CONTINUOUS IV
     Route: 042
     Dates: start: 20080204, end: 20080208
  2. HEPARIN [Suspect]
     Indication: THROMBOSIS
     Dosage: CONTINUOUS IV
     Route: 042
     Dates: start: 20080220, end: 20080221

REACTIONS (6)
  - DRUG EFFECT DECREASED [None]
  - DRUG INEFFECTIVE [None]
  - ERYTHEMA [None]
  - LABORATORY TEST ABNORMAL [None]
  - PRURITUS [None]
  - THROMBOSIS [None]
